FAERS Safety Report 9862057 (Version 1)
Quarter: 2014Q1

REPORT INFORMATION
  Report Type: Spontaneous
  Country: TW (occurrence: TW)
  Receive Date: 20140203
  Receipt Date: 20140203
  Transmission Date: 20141002
  Serious: Yes (Hospitalization, Other)
  Sender: FDA-Public Use
  Company Number: TW-AMGEN-TWNSP2014007018

PATIENT
  Age: 69 Year
  Sex: Female

DRUGS (8)
  1. ENBREL [Suspect]
     Indication: RHEUMATOID ARTHRITIS
     Dosage: 25 MG, 2X/WEEK
     Route: 058
     Dates: start: 20090408, end: 20131210
  2. ENBREL [Suspect]
     Dosage: UNK
     Route: 065
     Dates: start: 20140107
  3. SALAZOPYRIN [Concomitant]
     Dosage: 500 MG, 2X/DAY
     Route: 048
     Dates: start: 20130625
  4. PREDNISOLONE [Concomitant]
     Dosage: 5 MG, 2X/DAY
     Route: 048
     Dates: start: 20130625
  5. PLAQUENIL                          /00072602/ [Concomitant]
     Dosage: 1 DF, 2X/DAY
     Route: 048
     Dates: start: 20130625
  6. PREGABALIN [Concomitant]
     Dosage: 75 MG, 1X/DAY (QN)
     Route: 048
     Dates: start: 20130625
  7. CELECOXIB [Concomitant]
     Dosage: 1 DF, 2X/DAY
     Route: 048
     Dates: start: 20130625
  8. ARAVA [Concomitant]
     Dosage: 10 MG, 1X/DAY
     Route: 048
     Dates: start: 20140107

REACTIONS (1)
  - Rheumatoid arthritis [Recovered/Resolved]
